FAERS Safety Report 5918612-2 (Version None)
Quarter: 2008Q4

REPORT INFORMATION
  Report Type: 
  Country: None (occurrence: None)
  Receive Date: 20081015
  Receipt Date: 20081007
  Transmission Date: 20090506
  Serious: Yes (Other)
  Sender: FDA-Public Use
  Company Number: DE-JNJFOC-20081001624

PATIENT
  Age: 40 Year
  Sex: Female

DRUGS (3)
  1. RISPERDAL [Suspect]
     Indication: DRUG USE FOR UNKNOWN INDICATION
     Dosage: IN THE MORNING 2MG AND IN THE EVENING 3 MG
     Route: 048
  2. L-THYROX [Concomitant]
     Route: 065
  3. SIMVADURA [Concomitant]
     Route: 065

REACTIONS (5)
  - AMENORRHOEA [None]
  - GALACTORRHOEA [None]
  - INCREASED APPETITE [None]
  - MEMORY IMPAIRMENT [None]
  - WEIGHT INCREASED [None]
